FAERS Safety Report 17872463 (Version 2)
Quarter: 2020Q3

REPORT INFORMATION
  Report Type: Spontaneous
  Country: US (occurrence: US)
  Receive Date: 20200608
  Receipt Date: 20200917
  Transmission Date: 20201103
  Serious: Yes (Other)
  Sender: FDA-Public Use
  Company Number: US-ASTRAZENECA-2020SE72424

PATIENT
  Age: 55 Year
  Sex: Female
  Weight: 73.5 kg

DRUGS (39)
  1. NEXIUM [Suspect]
     Active Substance: ESOMEPRAZOLE MAGNESIUM
     Route: 048
     Dates: start: 2007, end: 2016
  2. MIRALAX [Concomitant]
     Active Substance: POLYETHYLENE GLYCOL 3350
  3. BUMEX [Concomitant]
     Active Substance: BUMETANIDE
  4. NUBAIN [Concomitant]
     Active Substance: NALBUPHINE HYDROCHLORIDE
  5. ALPRAZOLAM. [Concomitant]
     Active Substance: ALPRAZOLAM
  6. ISOSORBIDE DINITRATE. [Concomitant]
     Active Substance: ISOSORBIDE DINITRATE
  7. CLONIDINE. [Concomitant]
     Active Substance: CLONIDINE
  8. FOLIC ACID. [Concomitant]
     Active Substance: FOLIC ACID
  9. NAPROSYN [Concomitant]
     Active Substance: NAPROXEN
  10. CELEBREX [Concomitant]
     Active Substance: CELECOXIB
     Indication: ARTHRITIS
  11. BENADRYL [Concomitant]
     Active Substance: DIPHENHYDRAMINE HYDROCHLORIDE
     Indication: MULTIPLE ALLERGIES
  12. MYLANTA [Concomitant]
     Active Substance: ALUMINUM HYDROXIDE\DIMETHICONE\MAGNESIUM HYDROXIDE
  13. NITROPATCH [Concomitant]
     Active Substance: NITROGLYCERIN
  14. COENZYME Q10 [Concomitant]
     Active Substance: DIETARY SUPPLEMENT\UBIDECARENONE
  15. FUROSEMIDE. [Concomitant]
     Active Substance: FUROSEMIDE
  16. COLACE [Concomitant]
     Active Substance: DOCUSATE SODIUM
  17. PLAVIX [Concomitant]
     Active Substance: CLOPIDOGREL BISULFATE
     Indication: STENT PLACEMENT
     Dates: start: 2007
  18. VITAMIN D [Concomitant]
     Active Substance: VITAMIN D NOS
  19. CALCIUM [Concomitant]
     Active Substance: CALCIUM
  20. IODINE. [Concomitant]
     Active Substance: IODINE
  21. LISINOPRIL. [Concomitant]
     Active Substance: LISINOPRIL
     Indication: CARDIAC DISORDER
  22. CATOPRIL [Concomitant]
     Indication: CARDIAC DISORDER
  23. ZANTAC [Concomitant]
     Active Substance: RANITIDINE HYDROCHLORIDE
  24. OXYCODONE HYDROCHLORIDE. [Concomitant]
     Active Substance: OXYCODONE HYDROCHLORIDE
  25. PRILOSEC [Suspect]
     Active Substance: OMEPRAZOLE MAGNESIUM
     Route: 048
     Dates: start: 2007, end: 2016
  26. MULTIVITAMINS [Concomitant]
     Active Substance: VITAMINS
  27. TYLENOL [Concomitant]
     Active Substance: ACETAMINOPHEN
  28. ASPIRIN. [Concomitant]
     Active Substance: ASPIRIN
  29. MORPHINE [Concomitant]
     Active Substance: MORPHINE
  30. LIPITOR [Concomitant]
     Active Substance: ATORVASTATIN CALCIUM
     Indication: BLOOD CHOLESTEROL
     Dates: start: 2007, end: 2010
  31. LEVEMIR [Concomitant]
     Active Substance: INSULIN DETEMIR
  32. SODIUM CHLORIDE. [Concomitant]
     Active Substance: SODIUM CHLORIDE
  33. CARVEDILOL. [Concomitant]
     Active Substance: CARVEDILOL
  34. CITRACAL [Concomitant]
     Active Substance: CALCIUM CITRATE
  35. NEURONTIN [Concomitant]
     Active Substance: GABAPENTIN
  36. CALCITRIOL. [Concomitant]
     Active Substance: CALCITRIOL
  37. TORADOL [Concomitant]
     Active Substance: KETOROLAC TROMETHAMINE
  38. POTASSIUM [Concomitant]
     Active Substance: POTASSIUM
  39. MAALOX ANTACID [Concomitant]
     Active Substance: ALUMINUM HYDROXIDE\DIMETHICONE\MAGNESIUM HYDROXIDE

REACTIONS (3)
  - Hyperparathyroidism secondary [Unknown]
  - Acute kidney injury [Unknown]
  - Chronic kidney disease [Not Recovered/Not Resolved]

NARRATIVE: CASE EVENT DATE: 2009
